FAERS Safety Report 7410653-1 (Version None)
Quarter: 2011Q2

REPORT INFORMATION
  Report Type: 
  Country: None (occurrence: None)
  Receive Date: 20110413
  Receipt Date: 20110216
  Transmission Date: 20111010
  Serious: Yes (Hospitalization, Other)
  Sender: FDA-Public Use
  Company Number: US-BAYER-201040299NA

PATIENT
  Age: 46 Year
  Sex: Female
  Weight: 90.703 kg

DRUGS (10)
  1. COLAZAL [Concomitant]
     Indication: COLITIS ULCERATIVE
     Dosage: 750 MG, TID
     Route: 048
     Dates: start: 20050101, end: 20101110
  2. PRILOSEC [Concomitant]
     Dosage: 20 MG, UNK
     Route: 048
     Dates: start: 20050101, end: 20101222
  3. LORATADINE [Concomitant]
     Indication: HYPERSENSITIVITY
     Dosage: 10 MG, QD
  4. YAZ [Suspect]
     Indication: ACNE
     Dosage: UNK
     Route: 048
     Dates: start: 20070401, end: 20090101
  5. YAZ [Suspect]
     Indication: PREMENSTRUAL SYNDROME
  6. YASMIN [Suspect]
     Indication: PREMENSTRUAL SYNDROME
  7. PRILOSEC [Concomitant]
     Dosage: UNK
     Dates: start: 20050101
  8. YASMIN [Suspect]
     Indication: ACNE
     Dosage: UNK
     Route: 048
     Dates: start: 20070401, end: 20090101
  9. OCELLA [Suspect]
     Indication: ACNE
     Dosage: UNK
     Route: 048
     Dates: start: 20070401, end: 20090101
  10. OCELLA [Suspect]
     Indication: PREMENSTRUAL SYNDROME

REACTIONS (4)
  - CHOLECYSTITIS [None]
  - CHOLECYSTECTOMY [None]
  - INJURY [None]
  - CHOLELITHIASIS [None]
